FAERS Safety Report 8066330-X (Version None)
Quarter: 2012Q1

REPORT INFORMATION
  Report Type: 
  Country: None (occurrence: None)
  Receive Date: 20120124
  Receipt Date: 20120112
  Transmission Date: 20120608
  Serious: Yes (Death, Other)
  Sender: FDA-Public Use
  Company Number: FR-ELI_LILLY_AND_COMPANY-FR201111001156

PATIENT
  Age: 79 Year
  Sex: Female
  Weight: 68 kg

DRUGS (3)
  1. PHENOBARBITAL TAB [Concomitant]
     Indication: EPILEPSY
  2. DEPAKENE [Concomitant]
     Indication: EPILEPSY
     Dosage: UNK
  3. FORTEO [Suspect]
     Indication: OSTEOPOROSIS
     Dosage: 20 UG, QD
     Route: 058
     Dates: start: 20101020

REACTIONS (3)
  - FALL [None]
  - ANGIOPATHY [None]
  - FEMUR FRACTURE [None]
